FAERS Safety Report 16796873 (Version 2)
Quarter: 2020Q1

REPORT INFORMATION
  Report Type: Spontaneous
  Country: US (occurrence: US)
  Receive Date: 20190911
  Receipt Date: 20200205
  Transmission Date: 20200409
  Serious: No
  Sender: FDA-Public Use
  Company Number: US-009507513-1909USA000367

PATIENT
  Age: 37 Year
  Sex: Female

DRUGS (2)
  1. TEMODAR [Suspect]
     Active Substance: TEMOZOLOMIDE
     Indication: HAEMANGIOPERICYTOMA
     Dosage: UNK
     Dates: start: 2016
  2. BEVACIZUMAB. [Suspect]
     Active Substance: BEVACIZUMAB
     Indication: HAEMANGIOPERICYTOMA
     Dosage: UNK
     Dates: start: 2016

REACTIONS (3)
  - Product use in unapproved indication [Unknown]
  - Nausea [Unknown]
  - Vomiting [Unknown]

NARRATIVE: CASE EVENT DATE: 2016
